FAERS Safety Report 13817668 (Version 1)
Quarter: 2017Q3

REPORT INFORMATION
  Report Type: Spontaneous
  Country: US (occurrence: US)
  Receive Date: 20170731
  Receipt Date: 20170731
  Transmission Date: 20171127
  Serious: No
  Sender: FDA-Public Use
  Company Number: US-WOCKHARDT USA, LLC-2023970

PATIENT
  Age: 66 Year
  Sex: Male
  Weight: 104.55 kg

DRUGS (3)
  1. ZOCOR [Concomitant]
     Active Substance: SIMVASTATIN
  2. ENALAPRIL MALEATE. [Suspect]
     Active Substance: ENALAPRIL MALEATE
     Indication: HYPERTENSION
     Dates: start: 20170101
  3. TRICOR [Concomitant]
     Active Substance: FENOFIBRATE

REACTIONS (1)
  - Drug ineffective [Recovered/Resolved]
